FAERS Safety Report 16649799 (Version 2)
Quarter: 2019Q3

REPORT INFORMATION
  Report Type: Spontaneous
  Country: US (occurrence: US)
  Receive Date: 20190730
  Receipt Date: 20190807
  Transmission Date: 20191004
  Serious: No
  Sender: FDA-Public Use
  Company Number: US-AMGEN-USASP2019120162

PATIENT
  Age: 53 Year
  Sex: Female
  Weight: 203 kg

DRUGS (9)
  1. AVASTIN [Concomitant]
     Active Substance: BEVACIZUMAB
     Dosage: 1324 MILLIGRAM (IN 0.9% SODIUM CHLORIDE 100 ML)
     Route: 042
  2. DEXAMETHASONE. [Concomitant]
     Active Substance: DEXAMETHASONE
     Dosage: 10 MILLIGRAM (IN 5% DEXTROSE IN WATER 50 ML)
     Route: 042
  3. PEPCID [Concomitant]
     Active Substance: FAMOTIDINE
     Dosage: 20 MILLIGRAM (IN 5% DEXTROSE IN WATER 50 ML)
     Route: 042
  4. PARAPLATIN [Concomitant]
     Active Substance: CARBOPLATIN
     Dosage: 725 MILLIGRAM (IN 5% DEXTROSE IN WATER 250 ML)
     Route: 042
  5. ALOXI [Concomitant]
     Active Substance: PALONOSETRON HYDROCHLORIDE
     Dosage: 0.25 MILLIGRAM
     Route: 042
  6. NEULASTA [Suspect]
     Active Substance: PEGFILGRASTIM
     Indication: PRODUCT USED FOR UNKNOWN INDICATION
     Dosage: 6 MILLIGRAM, AFTER CHEMO
     Route: 058
  7. NACL [Concomitant]
     Active Substance: SODIUM CHLORIDE
     Dosage: 250 MILLILITER
     Route: 042
  8. TAXOL [Concomitant]
     Active Substance: PACLITAXEL
     Dosage: 252 MILLIGRAM (IN 0.9% SODIUM CHLORIDE 500 ML)
     Route: 042
  9. BENADRYL [Concomitant]
     Active Substance: DIPHENHYDRAMINE HYDROCHLORIDE
     Dosage: 25 MILLIGRAM (IN 5% DEXTROSE IN WATER 50 ML)
     Route: 042

REACTIONS (4)
  - Unintentional medical device removal [Unknown]
  - Wrong technique in product usage process [Unknown]
  - Accidental exposure to product [Unknown]
  - Product dose omission [Unknown]

NARRATIVE: CASE EVENT DATE: 201907
